FAERS Safety Report 18908316 (Version 1)
Quarter: 2021Q1

REPORT INFORMATION
  Report Type: Spontaneous
  Country: US (occurrence: US)
  Receive Date: 20210218
  Receipt Date: 20210218
  Transmission Date: 20210420
  Serious: No
  Sender: FDA-Public Use
  Company Number: US-AUROBINDO-AUR-APL-2020-059797

PATIENT
  Age: 50 Year
  Sex: Female
  Weight: 52.16 kg

DRUGS (2)
  1. ESTRADIOL. [Suspect]
     Active Substance: ESTRADIOL
     Indication: PREMATURE MENOPAUSE
     Dosage: UNK
     Route: 065
  2. PROGESTERONE CAPSULES 100 MG [Suspect]
     Active Substance: PROGESTERONE
     Indication: PREMATURE MENOPAUSE
     Dosage: UNK
     Route: 065

REACTIONS (3)
  - Swelling [Unknown]
  - Feeling abnormal [Unknown]
  - Product substitution issue [Unknown]
